FAERS Safety Report 8194113-9 (Version None)
Quarter: 2012Q1

REPORT INFORMATION
  Report Type: 
  Country: None (occurrence: None)
  Receive Date: 20120308
  Receipt Date: 20111116
  Transmission Date: 20120608
  Serious: No
  Sender: FDA-Public Use
  Company Number: US-JHP PHARMACEUTICALS, LLC-JHP201100595

PATIENT

DRUGS (1)
  1. KETALAR [Suspect]
     Indication: SEDATIVE THERAPY
     Dosage: UNK
     Dates: start: 20111101, end: 20111101

REACTIONS (2)
  - DRUG INEFFECTIVE [None]
  - HYPERSENSITIVITY [None]
